FAERS Safety Report 5879401-0 (Version None)
Quarter: 2008Q3

REPORT INFORMATION
  Report Type: 
  Country: None (occurrence: None)
  Receive Date: 20080912
  Receipt Date: 20080909
  Transmission Date: 20090109
  Serious: Yes (Hospitalization)
  Sender: FDA-Public Use
  Company Number: B0534575A

PATIENT
  Age: 80 Year
  Sex: Female
  Weight: 50 kg

DRUGS (1)
  1. VALTREX [Suspect]
     Indication: FACIAL PALSY
     Dosage: 1000MG THREE TIMES PER DAY
     Route: 048
     Dates: start: 20080818, end: 20080823

REACTIONS (5)
  - ALTERED STATE OF CONSCIOUSNESS [None]
  - ANOREXIA [None]
  - DIZZINESS [None]
  - NAUSEA [None]
  - RENAL FAILURE [None]
